FAERS Safety Report 13704216 (Version 1)
Quarter: 2017Q2

REPORT INFORMATION
  Report Type: Spontaneous
  Country: US (occurrence: US)
  Receive Date: 20170630
  Receipt Date: 20170630
  Transmission Date: 20170830
  Serious: Yes (Other)
  Sender: FDA-Public Use
  Company Number: US-BAXTER-2017BAX025861

PATIENT
  Age: 66 Year
  Sex: Male

DRUGS (7)
  1. ABRAXANE [Suspect]
     Active Substance: PACLITAXEL
     Indication: BREAST CANCER
     Dosage: TOTAL 3 CYCLES; ON DAY1, DAY 8 AND DAY 15
     Route: 042
     Dates: start: 20130513, end: 20130722
  2. LETROZOLE. [Suspect]
     Active Substance: LETROZOLE
     Indication: BREAST CANCER
     Route: 065
     Dates: start: 20150811
  3. CYCLOPHOSPHAMIDE FOR INJECTION, USP [Suspect]
     Active Substance: CYCLOPHOSPHAMIDE
     Indication: BREAST CANCER
     Dosage: TOTAL 3 CYCLES AS A NEOADJUVANT CHEMOTHERAPY
     Route: 042
     Dates: start: 20130311, end: 20130422
  4. TAMOXIFEN [Suspect]
     Active Substance: TAMOXIFEN
     Indication: BREAST CANCER
     Route: 065
     Dates: start: 20130924, end: 20150729
  5. PALBOCICLIB [Suspect]
     Active Substance: PALBOCICLIB
     Dosage: RESUMED THERAPY WITH REDUCED DOSE
     Route: 065
     Dates: start: 20161202
  6. TAXOTERE [Suspect]
     Active Substance: DOCETAXEL
     Indication: BREAST CANCER
     Dosage: TOTAL 3 CYCLES AS A NEOADJUVANT CHEMOTHERAPY
     Route: 042
     Dates: start: 20130311, end: 20130422
  7. PALBOCICLIB [Suspect]
     Active Substance: PALBOCICLIB
     Indication: BREAST CANCER
     Dosage: DAY 1-21 REPEATED EVERY 28 DAYS
     Route: 065
     Dates: start: 20150811, end: 201609

REACTIONS (13)
  - Inflammation [Unknown]
  - Lymphadenopathy [Unknown]
  - Breast inflammation [Unknown]
  - Disease progression [Unknown]
  - Axillary mass [Unknown]
  - Fatigue [Recovered/Resolved]
  - Necrosis [Unknown]
  - Metastases to lung [Unknown]
  - Pericardial effusion [Recovering/Resolving]
  - Skin hypertrophy [Unknown]
  - Lethargy [Recovered/Resolved]
  - Metastases to skin [Unknown]
  - Peripheral swelling [Unknown]

NARRATIVE: CASE EVENT DATE: 20130417
